FAERS Safety Report 10140966 (Version 1)
Quarter: 2014Q2

REPORT INFORMATION
  Report Type: Spontaneous
  Country: US (occurrence: US)
  Receive Date: 20140429
  Receipt Date: 20140429
  Transmission Date: 20141212
  Serious: No
  Sender: FDA-Public Use
  Company Number: US-JNJFOC-20140412831

PATIENT
  Age: 77 Year
  Sex: Male
  Weight: 74.84 kg

DRUGS (7)
  1. SANDOZ FENTANYL TRANSDERMAL SYSTEM [Suspect]
     Indication: PAIN
     Route: 062
     Dates: start: 201401
  2. FENTANYL [Suspect]
     Indication: PAIN
     Route: 062
     Dates: start: 201401
  3. XARELTO [Concomitant]
     Indication: ANTICOAGULANT THERAPY
     Route: 048
     Dates: start: 201308
  4. LEVSIN [Concomitant]
     Indication: MUSCLE SPASMS
     Dosage: AS NEEDED BEFORE MEALS
     Route: 048
     Dates: start: 201310
  5. AMITIZA [Concomitant]
     Indication: CONSTIPATION
     Route: 048
     Dates: start: 20130414
  6. CALCIUM [Concomitant]
     Indication: OSTEOMALACIA
     Route: 048
     Dates: start: 201309
  7. XGEVA [Concomitant]
     Indication: OSTEOMALACIA
     Route: 030
     Dates: start: 2013

REACTIONS (4)
  - Discomfort [Unknown]
  - Restlessness [Recovering/Resolving]
  - Wrong technique in drug usage process [Recovered/Resolved]
  - Pain in extremity [Recovering/Resolving]
